FAERS Safety Report 6614104-6 (Version None)
Quarter: 2010Q1

REPORT INFORMATION
  Report Type: 
  Country: None (occurrence: None)
  Receive Date: 20100304
  Receipt Date: 20100301
  Transmission Date: 20100710
  Serious: Yes (Other)
  Sender: FDA-Public Use
  Company Number: PHEH2008US01027

PATIENT
  Sex: Male

DRUGS (15)
  1. ELIDEL [Suspect]
     Route: 061
     Dates: start: 20040101
  2. CEPHALEXIN [Concomitant]
     Dosage: 250 MG, UNK
     Route: 048
  3. CLARITIN [Concomitant]
     Dosage: 10 MG, UNK
     Route: 048
  4. AUGMENTIN ES-600 [Concomitant]
     Dosage: 600 MG, UNK
     Route: 048
  5. BACTROBAN                               /NET/ [Concomitant]
     Dosage: 2 %, UNK
     Route: 061
  6. FLUOCINOLONE ACETONIDE [Concomitant]
     Dosage: 0.05 %, UNK
     Route: 061
  7. GUAIFENESIN W/HYDROCODONE BITARTRATE [Concomitant]
     Dosage: UNK
     Route: 048
  8. ZITHROMAX [Concomitant]
     Dosage: 200 MG, UNK
     Route: 048
  9. AMOXICILLIN [Concomitant]
     Dosage: 250 MG, UNK
     Route: 048
  10. PREDNISONE [Concomitant]
     Dosage: 5 MG, UNK
     Route: 048
  11. ALBUTEROL [Concomitant]
     Dosage: UNK
  12. BETAMETHASONE DIPROPIONATE OINTMENT [Concomitant]
     Dosage: 0.05 %, UNK
     Route: 061
  13. BREVOXYL [Concomitant]
     Dosage: UNK
     Route: 061
  14. OXYCODONE HCL [Concomitant]
     Dosage: 5 MG, PRN
     Route: 048
  15. ALLEGRA-D - SLOW RELEASE [Concomitant]
     Dosage: UNK

REACTIONS (3)
  - DERMATITIS ACNEIFORM [None]
  - ECZEMA [None]
  - MALIGNANT MELANOMA STAGE I [None]
